FAERS Safety Report 18101234 (Version 1)
Quarter: 2020Q3

REPORT INFORMATION
  Report Type: Other
  Country: JP (occurrence: JP)
  Receive Date: 20200801
  Receipt Date: 20200801
  Transmission Date: 20201103
  Serious: Yes (Hospitalization, Other)
  Sender: FDA-Public Use
  Company Number: JP-LUPIN PHARMACEUTICALS INC.-2019-08011

PATIENT
  Age: 29 Year
  Sex: Female
  Weight: 49 kg

DRUGS (4)
  1. LEVOFLOXACIN 500MG TABLET [Suspect]
     Active Substance: LEVOFLOXACIN
     Indication: PHARYNGITIS
     Dosage: UNK
     Route: 048
     Dates: start: 20191026
  2. MEDRONE [ALUMINIUM CHLOROHYDRATE;METHYLPREDNISOLONE ACETATE;SULFUR] [Suspect]
     Active Substance: ALUMINUM CHLOROHYDRATE\METHYLPREDNISOLONE ACETATE\SULFUR
     Indication: PHARYNGITIS
     Dosage: UNK
     Route: 048
     Dates: start: 20191026
  3. CRAVIT [Suspect]
     Active Substance: LEVOFLOXACIN
     Indication: PHARYNGITIS
     Dosage: UNK
     Route: 048
     Dates: start: 20191026
  4. CARBOCISTEINE [Suspect]
     Active Substance: CARBOCYSTEINE
     Indication: PHARYNGITIS
     Dosage: UNK
     Route: 048
     Dates: start: 20191026

REACTIONS (1)
  - Erythema multiforme [Recovered/Resolved]

NARRATIVE: CASE EVENT DATE: 20191026
